FAERS Safety Report 7825357-0 (Version None)
Quarter: 2011Q4

REPORT INFORMATION
  Report Type: 
  Country: None (occurrence: None)
  Receive Date: 20111019
  Receipt Date: 20111012
  Transmission Date: 20120403
  Serious: Yes (Hospitalization, Other)
  Sender: FDA-Public Use
  Company Number: PHHY2011DK82741

PATIENT

DRUGS (15)
  1. PREDNISOLONE [Suspect]
     Indication: B-CELL LYMPHOMA RECURRENT
     Route: 065
     Dates: start: 20080115
  2. ZEVALIN [Suspect]
     Route: 065
     Dates: start: 20060901, end: 20060901
  3. DOXORUBICIN HCL [Suspect]
     Indication: B-CELL LYMPHOMA RECURRENT
     Route: 065
     Dates: start: 20060901
  4. PREDNISONE [Suspect]
     Indication: B-CELL LYMPHOMA RECURRENT
     Route: 065
     Dates: start: 20080115
  5. VINCRISTINE [Suspect]
     Indication: B-CELL LYMPHOMA RECURRENT
     Route: 065
     Dates: start: 20060901
  6. RITUXIMAB [Suspect]
     Dosage: UNK
     Route: 065
     Dates: start: 20060901
  7. PREDNISONE [Suspect]
     Route: 065
     Dates: start: 20060901
  8. RITUXIMAB [Suspect]
     Indication: B-CELL LYMPHOMA RECURRENT
     Route: 065
     Dates: start: 20050110
  9. RITUXIMAB [Suspect]
     Route: 065
     Dates: start: 20060215
  10. ZEVALIN [Suspect]
     Indication: B-CELL LYMPHOMA RECURRENT
     Route: 065
     Dates: start: 20060215
  11. RITUXIMAB [Suspect]
     Route: 065
     Dates: start: 20080115
  12. YTRACIS [Suspect]
     Indication: B-CELL LYMPHOMA RECURRENT
     Route: 065
     Dates: start: 20060901, end: 20060901
  13. CYCLOPHOSPHAMIDE [Suspect]
     Indication: B-CELL LYMPHOMA RECURRENT
     Route: 065
     Dates: start: 20050110
  14. CYCLOPHOSPHAMIDE [Suspect]
     Route: 065
     Dates: start: 20060901
  15. BENDAMUSTINE [Suspect]
     Indication: B-CELL LYMPHOMA RECURRENT
     Route: 065
     Dates: start: 20080115

REACTIONS (3)
  - SEPSIS [None]
  - MYELODYSPLASTIC SYNDROME [None]
  - B-CELL LYMPHOMA [None]
